FAERS Safety Report 12970775 (Version 2)
Quarter: 2016Q4

REPORT INFORMATION
  Report Type: Spontaneous
  Country: US (occurrence: US)
  Receive Date: 20161123
  Receipt Date: 20161209
  Transmission Date: 20170207
  Serious: Yes (Hospitalization)
  Sender: FDA-Public Use
  Company Number: US-ACTELION-A-US2016-146009

PATIENT
  Age: 71 Year
  Sex: Female

DRUGS (21)
  1. DULOXETINE HCL [Concomitant]
     Active Substance: DULOXETINE HYDROCHLORIDE
  2. METFORMIN [Concomitant]
     Active Substance: METFORMIN HYDROCHLORIDE
     Indication: ESSENTIAL HYPERTENSION
  3. IRBESARTAN. [Concomitant]
     Active Substance: IRBESARTAN
  4. SILDENAFIL. [Concomitant]
     Active Substance: SILDENAFIL
     Indication: PULMONARY ARTERIAL HYPERTENSION
     Dosage: 20 MG, UNK
  5. TRAMADOL. [Concomitant]
     Active Substance: TRAMADOL
  6. HYDROCHLOROTHIAZIDE. [Concomitant]
     Active Substance: HYDROCHLOROTHIAZIDE
  7. CRESTOR [Concomitant]
     Active Substance: ROSUVASTATIN CALCIUM
  8. PREDNISOLONE. [Concomitant]
     Active Substance: PREDNISOLONE
  9. VICTOZA [Concomitant]
     Active Substance: LIRAGLUTIDE
  10. URSODIOL. [Concomitant]
     Active Substance: URSODIOL
  11. LISINOPRIL. [Concomitant]
     Active Substance: LISINOPRIL
  12. VIGAMOX [Concomitant]
     Active Substance: MOXIFLOXACIN HYDROCHLORIDE
  13. AZITHROMYCIN ANHYDROUS. [Concomitant]
     Active Substance: AZITHROMYCIN ANHYDROUS
  14. MELOXICAM. [Concomitant]
     Active Substance: MELOXICAM
  15. TRACLEER [Suspect]
     Active Substance: BOSENTAN
     Indication: PULMONARY HYPERTENSION
     Dosage: 125 MG, UNK
     Route: 048
     Dates: start: 20160920
  16. POTASSIUM CHLORIDE. [Concomitant]
     Active Substance: POTASSIUM CHLORIDE
  17. FUROSEMIDE. [Concomitant]
     Active Substance: FUROSEMIDE
  18. LANTUS [Concomitant]
     Active Substance: INSULIN GLARGINE
  19. METOPROLOL. [Concomitant]
     Active Substance: METOPROLOL
  20. GABAPENTIN. [Concomitant]
     Active Substance: GABAPENTIN
  21. DULOXETINE. [Concomitant]
     Active Substance: DULOXETINE

REACTIONS (1)
  - Coronary artery bypass [Recovering/Resolving]
